FAERS Safety Report 25666162 (Version 5)
Quarter: 2025Q4

REPORT INFORMATION
  Report Type: Spontaneous
  Country: US (occurrence: US)
  Receive Date: 20250811
  Receipt Date: 20251008
  Transmission Date: 20260117
  Serious: No
  Sender: PFIZER
  Company Number: US-PFIZER INC-202500160711

PATIENT
  Age: 54 Year
  Sex: Female
  Weight: 65.77 kg

DRUGS (7)
  1. IBRANCE [Suspect]
     Active Substance: PALBOCICLIB
     Indication: Breast cancer female
     Dosage: 125 MG, DAILY
     Route: 048
     Dates: start: 20250727
  2. IBRANCE [Suspect]
     Active Substance: PALBOCICLIB
     Dosage: 125 MG, CYCLIC (DAILY FOR 21 DAYS ON, 7 DAYS OFF)
     Route: 048
     Dates: start: 20250815
  3. IBRANCE [Suspect]
     Active Substance: PALBOCICLIB
     Dosage: 125 MG, CYCLIC, (TAKE 1 TABLET ONCE DAILY FOR 21 DAYS THEN 7 DAYS OFF )
     Route: 048
     Dates: start: 20250909
  4. IBRANCE [Suspect]
     Active Substance: PALBOCICLIB
     Dosage: 125 MG
     Dates: start: 20250912
  5. ANASTROZOLE [Concomitant]
     Active Substance: ANASTROZOLE
     Dosage: UNK
     Dates: start: 20250815
  6. ANASTROZOLE [Concomitant]
     Active Substance: ANASTROZOLE
     Dosage: UNK
     Dates: start: 20250909
  7. ANASTROZOLE [Concomitant]
     Active Substance: ANASTROZOLE
     Dosage: UNK
     Dates: start: 20250912

REACTIONS (13)
  - Fatigue [Unknown]
  - Insomnia [Unknown]
  - Alopecia [Unknown]
  - Bone pain [Unknown]
  - Decreased appetite [Unknown]
  - Hormone level abnormal [Not Recovered/Not Resolved]
  - Anxiety [Not Recovered/Not Resolved]
  - Nervousness [Not Recovered/Not Resolved]
  - Mood swings [Not Recovered/Not Resolved]
  - Condition aggravated [Unknown]
  - Pain in extremity [Unknown]
  - Arthralgia [Unknown]
  - Pain [Recovering/Resolving]

NARRATIVE: CASE EVENT DATE: 20250806
